FAERS Safety Report 17565791 (Version 1)
Quarter: 2020Q1

REPORT INFORMATION
  Report Type: Spontaneous
  Country: US (occurrence: US)
  Receive Date: 20200308
  Receipt Date: 20200308
  Transmission Date: 20200409
  Serious: Yes (Other)
  Sender: FDA-Public Use
  Company Number: None

PATIENT
  Age: 36 Year
  Sex: Female
  Weight: 81 kg

DRUGS (12)
  1. AMERGE [Concomitant]
     Active Substance: NARATRIPTAN HYDROCHLORIDE
  2. CALCIUM-MAGNESIUM [Concomitant]
     Active Substance: CALCIUM\MAGNESIUM
  3. VITAMIN C [Concomitant]
     Active Substance: ASCORBIC ACID
  4. PROBIOTIC [Concomitant]
     Active Substance: PROBIOTICS NOS
  5. COENZYME Q10 [Concomitant]
     Active Substance: UBIDECARENONE
  6. MONTELUKAST [Suspect]
     Active Substance: MONTELUKAST SODIUM
     Indication: ASTHMA
     Dosage: ?          QUANTITY:1 TABLET(S);?
     Route: 048
     Dates: start: 20190704, end: 20200216
  7. ZOFRAN [Concomitant]
     Active Substance: ONDANSETRON HYDROCHLORIDE
  8. PEPCID [Concomitant]
     Active Substance: FAMOTIDINE
  9. PETADOLEX [Concomitant]
     Active Substance: HERBALS
  10. VITAMIN B12 [Concomitant]
     Active Substance: CYANOCOBALAMIN
  11. VITAMIN D [Concomitant]
     Active Substance: VITAMIN D NOS
  12. ZYRTEC [Concomitant]
     Active Substance: CETIRIZINE HYDROCHLORIDE

REACTIONS (1)
  - Suicidal ideation [None]

NARRATIVE: CASE EVENT DATE: 20200210
